FAERS Safety Report 7287951-8 (Version None)
Quarter: 2011Q1

REPORT INFORMATION
  Report Type: 
  Country: None (occurrence: None)
  Receive Date: 20110208
  Receipt Date: 20110208
  Transmission Date: 20110831
  Serious: Yes (Other)
  Sender: FDA-Public Use
  Company Number: None

PATIENT
  Age: 28 Year
  Sex: Male

DRUGS (4)
  1. AVASTIN [Suspect]
     Indication: GLIOBLASTOMA
  2. IRINOTECAN HYDROCHLORIDE [Suspect]
  3. TARCEVA [Suspect]
  4. CARBOPLATIN [Suspect]

REACTIONS (6)
  - FATIGUE [None]
  - ONYCHOCLASIS [None]
  - STOMATITIS [None]
  - HYPERSOMNIA [None]
  - NAUSEA [None]
  - RASH GENERALISED [None]
